FAERS Safety Report 5133130-X (Version None)
Quarter: 2006Q4

REPORT INFORMATION
  Report Type: 
  Country: None (occurrence: None)
  Receive Date: 20061017
  Receipt Date: 20061004
  Transmission Date: 20070319
  Serious: Yes (Other)
  Sender: FDA-Public Use
  Company Number: 2006123423

PATIENT
  Age: 80 Year

DRUGS (7)
  1. HALCION [Suspect]
     Dosage: ORAL
     Route: 048
  2. LENDORM [Concomitant]
  3. LOSARTAN POSTASSIUM [Concomitant]
  4. CARDENALIN (DOXAZOSIN) [Concomitant]
  5. ARICEPT [Concomitant]
  6. DOGMATYL (SULPIRIDE) [Concomitant]
  7. NIFEDIPINE [Concomitant]

REACTIONS (1)
  - BLOOD PRESSURE INCREASED [None]
